FAERS Safety Report 9053294 (Version 2)
Quarter: 2013Q1

REPORT INFORMATION
  Report Type: Spontaneous
  Country: US (occurrence: US)
  Receive Date: 20130207
  Receipt Date: 20130312
  Transmission Date: 20140127
  Serious: Yes (Other)
  Sender: FDA-Public Use
  Company Number: US-AMGEN-USASP2013007888

PATIENT
  Age: 62 Year
  Sex: Female

DRUGS (4)
  1. SENSIPAR [Suspect]
     Indication: PRODUCT USED FOR UNKNOWN INDICATION
     Dosage: UNK
  2. SENSIPAR [Suspect]
  3. ENSURE                             /07421001/ [Concomitant]
  4. BOOST [Concomitant]

REACTIONS (8)
  - Parathyroid tumour benign [Unknown]
  - Blood calcium increased [Unknown]
  - Malaise [Unknown]
  - Blood phosphorus abnormal [Unknown]
  - Calcium phosphate product increased [Unknown]
  - Feeling abnormal [Unknown]
  - Diarrhoea [Unknown]
  - Nausea [Unknown]
